FAERS Safety Report 4488595-3 (Version None)
Quarter: 2004Q4

REPORT INFORMATION
  Report Type: 
  Country: None (occurrence: None)
  Receive Date: 20041026
  Receipt Date: 20040928
  Transmission Date: 20050328
  Serious: No
  Sender: FDA-Public Use
  Company Number: USA040979631

PATIENT
  Age: 47 Year
  Sex: Male

DRUGS (3)
  1. STRATTERA [Suspect]
     Indication: ATTENTION DEFICIT/HYPERACTIVITY DISORDER
     Dosage: 120 MG DAY
     Dates: start: 20030201
  2. ADDERALL 10 [Concomitant]
  3. WELLBUTRIN [Concomitant]

REACTIONS (1)
  - ALANINE AMINOTRANSFERASE INCREASED [None]
